FAERS Safety Report 5704014-0 (Version None)
Quarter: 2008Q2

REPORT INFORMATION
  Report Type: 
  Country: None (occurrence: None)
  Receive Date: 20080414
  Receipt Date: 20080402
  Transmission Date: 20081010
  Serious: Yes (Life-Threatening, Hospitalization)
  Sender: FDA-Public Use
  Company Number: JP-NOVOPROD-273078

PATIENT
  Age: 78 Year
  Sex: Female
  Weight: 46 kg

DRUGS (10)
  1. LEVEMIR [Suspect]
     Indication: INSULIN-REQUIRING TYPE 2 DIABETES MELLITUS
     Dosage: 10 IU, QD
     Route: 058
     Dates: start: 20071228, end: 20080306
  2. NOVORAPID 30 MIX CHU FLEXPEN [Concomitant]
     Indication: INSULIN-REQUIRING TYPE 2 DIABETES MELLITUS
     Dosage: 20 IU, QD
     Route: 058
     Dates: start: 20060721
  3. THYRADIN S [Concomitant]
     Dosage: 100 UG, QD
     Route: 048
     Dates: start: 20030507
  4. CLARITHROMYCIN [Concomitant]
     Dosage: 400 MG, QD
     Route: 048
     Dates: start: 20080229, end: 20080306
  5. MUCOSOLVAN                         /00546001/ [Concomitant]
     Dosage: 45 MG, QD
     Route: 048
     Dates: start: 20080229, end: 20080306
  6. KAKKON-TO [Concomitant]
     Dosage: 3 UNK, QD
     Route: 048
     Dates: start: 20080229, end: 20080306
  7. ASPIRIN [Concomitant]
     Dosage: 100 MG, QD
     Route: 048
  8. LIPITOR [Concomitant]
     Dosage: 10 MG, QD
     Route: 048
  9. DIGOXIN [Concomitant]
  10. MYSLEE [Concomitant]
     Dosage: UNK, UNK
     Route: 048

REACTIONS (3)
  - DECREASED APPETITE [None]
  - DEPRESSED LEVEL OF CONSCIOUSNESS [None]
  - HYPOGLYCAEMIA [None]
